FAERS Safety Report 11966863 (Version 1)
Quarter: 2016Q1

REPORT INFORMATION
  Report Type: Spontaneous
  Country: FR (occurrence: FR)
  Receive Date: 20160127
  Receipt Date: 20160127
  Transmission Date: 20160526
  Serious: Yes (Other)
  Sender: FDA-Public Use
  Company Number: FR-ABBVIE-16K-056-1541850-00

PATIENT
  Sex: Female

DRUGS (1)
  1. HUMIRA [Suspect]
     Active Substance: ADALIMUMAB
     Indication: CROHN^S DISEASE
     Route: 058

REACTIONS (8)
  - Ear disorder [Unknown]
  - Visual impairment [Unknown]
  - Arrhythmia [Unknown]
  - Pharyngeal disorder [Unknown]
  - Hypokalaemia [Unknown]
  - Psoriasis [Unknown]
  - Nasal disorder [Unknown]
  - Hypertension [Unknown]
